FAERS Safety Report 18700288 (Version 4)
Quarter: 2021Q1

REPORT INFORMATION
  Report Type: Spontaneous
  Country: US (occurrence: US)
  Receive Date: 20210105
  Receipt Date: 20210213
  Transmission Date: 20210419
  Serious: No
  Sender: FDA-Public Use
  Company Number: US-SA-2021SA001097

PATIENT
  Age: 22 Year
  Sex: Female

DRUGS (1)
  1. DUPIXENT [Suspect]
     Active Substance: DUPILUMAB
     Indication: DERMATITIS ATOPIC
     Dosage: 600 MG, 1X
     Route: 058
     Dates: start: 20201231, end: 20201231

REACTIONS (3)
  - Injection site swelling [Recovering/Resolving]
  - Device issue [Recovering/Resolving]
  - Incorrect dose administered by device [Unknown]

NARRATIVE: CASE EVENT DATE: 20201231
